FAERS Safety Report 11431998 (Version 1)
Quarter: 2015Q3

REPORT INFORMATION
  Report Type: Spontaneous
  Country: TR (occurrence: TR)
  Receive Date: 20150828
  Receipt Date: 20150828
  Transmission Date: 20151125
  Serious: Yes (Death, Other)
  Sender: FDA-Public Use
  Company Number: TR-BAYER-2015-405758

PATIENT
  Age: 12 Year
  Sex: Male

DRUGS (5)
  1. CLOFARABINE [Suspect]
     Active Substance: CLOFARABINE
     Indication: ACUTE MYELOID LEUKAEMIA
     Dosage: 40MG/M2/DAY FOR 5 DAYS
  2. SORAFENIB (RAF KINASE INHIBITOR) [Suspect]
     Active Substance: SORAFENIB
     Indication: ACUTE MYELOID LEUKAEMIA
     Dosage: 2X200MG/M2/DAY
     Route: 048
  3. FLUDARABINE [Suspect]
     Active Substance: FLUDARABINE PHOSPHATE
  4. IDARUBICIN [Suspect]
     Active Substance: IDARUBICIN
  5. CYTARABINE. [Suspect]
     Active Substance: CYTARABINE
     Indication: ACUTE MYELOID LEUKAEMIA
     Dosage: 1G/M2/DAY FOR 5 DAYS

REACTIONS (12)
  - Off label use [None]
  - Hypertension [None]
  - Eye haemorrhage [None]
  - Drug administered to patient of inappropriate age [None]
  - Abdominal pain upper [None]
  - Renal impairment [None]
  - Metabolic acidosis [None]
  - Bone pain [None]
  - Myalgia [None]
  - Neutropenic sepsis [Fatal]
  - Pancytopenia [None]
  - Mouth haemorrhage [None]
